FAERS Safety Report 13426473 (Version 2)
Quarter: 2017Q2

REPORT INFORMATION
  Report Type: Report from Study
  Country: FR (occurrence: FR)
  Receive Date: 20170411
  Receipt Date: 20170412
  Transmission Date: 20170830
  Serious: Yes (Hospitalization)
  Sender: FDA-Public Use
  Company Number: FR-ROCHE-1916143

PATIENT
  Age: 73 Year
  Sex: Female

DRUGS (5)
  1. BEVACIZUMAB [Suspect]
     Active Substance: BEVACIZUMAB
     Indication: CERVIX CARCINOMA
     Dosage: DATE OF MOST RECENT DOSE: 23/MAR/2017
     Route: 065
     Dates: start: 20160801
  2. DUPHASTON [Concomitant]
     Active Substance: DYDROGESTERONE
     Route: 048
  3. BLINDED OLAPARIB [Suspect]
     Active Substance: OLAPARIB
     Indication: CERVIX CARCINOMA
     Dosage: DATE OF MOST RECENT DOSE: 29/MAR/2017
     Route: 065
     Dates: start: 20161027
  4. ESTREVA [Concomitant]
     Active Substance: ESTRADIOL
     Route: 048
  5. PROLIA [Concomitant]
     Active Substance: DENOSUMAB
     Route: 048

REACTIONS (1)
  - Intestinal obstruction [Recovered/Resolved]

NARRATIVE: CASE EVENT DATE: 20170331
